FAERS Safety Report 8326727-7 (Version None)
Quarter: 2012Q2

REPORT INFORMATION
  Report Type: 
  Country: None (occurrence: None)
  Receive Date: 20120501
  Receipt Date: 20120424
  Transmission Date: 20120825
  Serious: No
  Sender: FDA-Public Use
  Company Number: US-JNJFOC-20120312278

PATIENT
  Sex: Female

DRUGS (3)
  1. INVEGA SUSTENNA [Suspect]
     Route: 030
     Dates: start: 20120411
  2. INVEGA SUSTENNA [Suspect]
     Indication: PRODUCT USED FOR UNKNOWN INDICATION
     Route: 030
     Dates: start: 20120314
  3. INVEGA SUSTENNA [Suspect]
     Route: 030
     Dates: start: 20120215

REACTIONS (4)
  - BREAST DISCHARGE [None]
  - RESTLESS LEGS SYNDROME [None]
  - SOMNOLENCE [None]
  - MUSCLE TWITCHING [None]
